FAERS Safety Report 8348420-7 (Version None)
Quarter: 2012Q2

REPORT INFORMATION
  Report Type: 
  Country: None (occurrence: None)
  Receive Date: 20120509
  Receipt Date: 20120504
  Transmission Date: 20120825
  Serious: Yes (Other)
  Sender: FDA-Public Use
  Company Number: CHPA2012US009178

PATIENT
  Age: 66 Year
  Sex: Female

DRUGS (2)
  1. VOLTAREN [Suspect]
     Indication: OSTEOARTHRITIS
     Dosage: UNK, 1-3 TIMES DAILY
     Route: 061
  2. CELEBREX [Concomitant]
     Dosage: UNK
     Dates: start: 20120101

REACTIONS (2)
  - UNDERDOSE [None]
  - BUNION [None]
